FAERS Safety Report 25878115 (Version 2)
Quarter: 2025Q4

REPORT INFORMATION
  Report Type: Report from Study
  Country: US (occurrence: None)
  Receive Date: 20251003
  Receipt Date: 20251126
  Transmission Date: 20260117
  Serious: Yes (Hospitalization, Other)
  Sender: UCB
  Company Number: US-UCBSA-2025060204

PATIENT
  Weight: 59.9 kg

DRUGS (2)
  1. FENFLURAMINE [Suspect]
     Active Substance: FENFLURAMINE
     Indication: Lennox-Gastaut syndrome
     Dosage: 3 MILLILITER, 2X/DAY (BID)
  2. FENFLURAMINE [Suspect]
     Active Substance: FENFLURAMINE
     Dosage: 3 MILLILITER, 2X/DAY (BID)

REACTIONS (7)
  - Gastrointestinal haemorrhage [Recovering/Resolving]
  - Coeliac disease [Recovering/Resolving]
  - Hyperdynamic left ventricle [Not Recovered/Not Resolved]
  - Seizure [Not Recovered/Not Resolved]
  - Dyspnoea [Recovering/Resolving]
  - Ulcer [Recovering/Resolving]
  - Decreased appetite [Not Recovered/Not Resolved]
